FAERS Safety Report 8080507-9 (Version None)
Quarter: 2012Q1

REPORT INFORMATION
  Report Type: 
  Country: None (occurrence: None)
  Receive Date: 20120130
  Receipt Date: 20120123
  Transmission Date: 20120608
  Serious: No
  Sender: FDA-Public Use
  Company Number: US-PFIZER INC-2012019453

PATIENT
  Sex: Female

DRUGS (2)
  1. CEPHALEXIN [Suspect]
  2. VANCOMYCIN HCL [Suspect]

REACTIONS (3)
  - RASH [None]
  - HYPERSENSITIVITY [None]
  - FLUSHING [None]
